FAERS Safety Report 7295365-X (Version None)
Quarter: 2011Q1

REPORT INFORMATION
  Report Type: 
  Country: None (occurrence: None)
  Receive Date: 20110203
  Receipt Date: 20110124
  Transmission Date: 20110831
  Serious: Yes (Hospitalization)
  Sender: FDA-Public Use
  Company Number: 026108

PATIENT
  Sex: Female
  Weight: 40 kg

DRUGS (6)
  1. OMEPRAZOLE [Concomitant]
  2. FOLSAN [Concomitant]
  3. CERTOLIZUMAB PEGOL (CERTOLIZUMAB PEGOL) [Suspect]
     Indication: RHEUMATOID ARTHRITIS
     Dosage: SUBCUTANEOUS
     Route: 058
     Dates: start: 20100125
  4. METHOTREXATE [Concomitant]
  5. PREDNISOLONE [Concomitant]
  6. DICLOFENAC [Concomitant]

REACTIONS (5)
  - MUSCULOSKELETAL PAIN [None]
  - DYSPHAGIA [None]
  - ARTHRALGIA [None]
  - NASOPHARYNGITIS [None]
  - COUGH [None]
